FAERS Safety Report 15020900 (Version 4)
Quarter: 2021Q2

REPORT INFORMATION
  Report Type: Spontaneous
  Country: US (occurrence: US)
  Receive Date: 20180618
  Receipt Date: 20210405
  Transmission Date: 20210716
  Serious: Yes (Hospitalization, Other)
  Sender: FDA-Public Use
  Company Number: US-PFIZER INC-2018245574

PATIENT
  Age: 81 Year
  Sex: Female
  Weight: 47.62 kg

DRUGS (1)
  1. XELJANZ XR [Suspect]
     Active Substance: TOFACITINIB CITRATE
     Dosage: 11 MG, DAILY
     Route: 048

REACTIONS (4)
  - Kidney infection [Unknown]
  - Dementia [Unknown]
  - Confusional state [Not Recovered/Not Resolved]
  - Haematochezia [Unknown]
